FAERS Safety Report 5877652-2 (Version None)
Quarter: 2008Q3

REPORT INFORMATION
  Report Type: 
  Country: None (occurrence: None)
  Receive Date: 20080911
  Receipt Date: 20080901
  Transmission Date: 20090109
  Serious: Yes (Other)
  Sender: FDA-Public Use
  Company Number: NL-ALLERGAN-0810903US

PATIENT
  Sex: Male
  Weight: 20 kg

DRUGS (1)
  1. BOTOX [Suspect]
     Indication: CEREBRAL PALSY
     Dosage: 330 UNITS, SINGLE
     Route: 030
     Dates: start: 20080305, end: 20080305

REACTIONS (5)
  - COORDINATION ABNORMAL [None]
  - DROOLING [None]
  - EATING DISORDER [None]
  - INCONTINENCE [None]
  - SPEECH DISORDER [None]
